FAERS Safety Report 4665413-1 (Version None)
Quarter: 2005Q2

REPORT INFORMATION
  Report Type: 
  Country: None (occurrence: None)
  Receive Date: 20050517
  Receipt Date: 20050429
  Transmission Date: 20051028
  Serious: Yes (Hospitalization, Disabling, Other)
  Sender: FDA-Public Use
  Company Number: US_0505116977

PATIENT
  Age: 47 Year
  Sex: Male
  Weight: 70 kg

DRUGS (12)
  1. HUMULIN-HMAN REGULAR INSULIN (RDNA) (HUMAN INSULIN) [Suspect]
     Indication: DIABETES MELLITUS
     Dosage: 6 U DAY
     Dates: start: 19850101
  2. HUMULIN N [Suspect]
     Indication: DIABETES MELLITUS
     Dosage: 17 U DAY
     Dates: start: 19850101
  3. HUMALOG [Suspect]
     Indication: DIABETES MELLITUS
     Dates: start: 20000101
  4. INSULIN [Suspect]
     Indication: DIABETES MELLITUS
     Dates: start: 19610101, end: 19850101
  5. PLAVIX [Concomitant]
  6. BETACAROTENE [Concomitant]
  7. MULTI-VITAMINS [Concomitant]
  8. FOLIC ACID [Concomitant]
  9. VIT C TAB [Concomitant]
  10. FISH OIL [Concomitant]
  11. METAMUCIL-2 [Concomitant]
  12. DOCUSATE SODIUM W/SENNA [Concomitant]

REACTIONS (18)
  - BLINDNESS [None]
  - BLISTER [None]
  - BLOOD GLUCOSE INCREASED [None]
  - CONVULSION [None]
  - DEVICE FAILURE [None]
  - ESCHERICHIA INFECTION [None]
  - GANGRENE [None]
  - HAEMODIALYSIS [None]
  - HYPERSENSITIVITY [None]
  - LEG AMPUTATION [None]
  - LIMB INJURY [None]
  - LIMB PROSTHESIS USER [None]
  - PHARMACEUTICAL PRODUCT COMPLAINT [None]
  - RENAL FAILURE [None]
  - RENAL TRANSPLANT [None]
  - SEPSIS [None]
  - STAPHYLOCOCCAL INFECTION [None]
  - TRANSPLANT FAILURE [None]
